FAERS Safety Report 6714448-3 (Version None)
Quarter: 2010Q2

REPORT INFORMATION
  Report Type: 
  Country: None (occurrence: None)
  Receive Date: 20100506
  Receipt Date: 20100429
  Transmission Date: 20101027
  Serious: Yes (Hospitalization, Disabling)
  Sender: FDA-Public Use
  Company Number: US-MERCK-0812USA01550

PATIENT
  Age: 51 Year
  Sex: Female
  Weight: 77 kg

DRUGS (1)
  1. FOSAMAX [Suspect]
     Indication: OSTEOPENIA
     Route: 048
     Dates: start: 20040801, end: 20060401

REACTIONS (43)
  - ABDOMINAL PAIN [None]
  - ACUTE SINUSITIS [None]
  - ANOSMIA [None]
  - ANXIETY [None]
  - BONE DENSITY DECREASED [None]
  - BONE DISORDER [None]
  - BRONCHITIS [None]
  - CARDIAC MURMUR [None]
  - CEREBRAL DISORDER [None]
  - DENTAL CARIES [None]
  - DEPRESSION [None]
  - DIARRHOEA [None]
  - DRUG EFFECT DECREASED [None]
  - FATIGUE [None]
  - GASTROENTERITIS [None]
  - GASTROOESOPHAGEAL REFLUX DISEASE [None]
  - GINGIVAL BLEEDING [None]
  - GOITRE [None]
  - HEADACHE [None]
  - IMPAIRED HEALING [None]
  - INCREASED TENDENCY TO BRUISE [None]
  - LARYNGITIS [None]
  - LYME DISEASE [None]
  - MENINGEAL DISORDER [None]
  - MENINGITIS BACTERIAL [None]
  - MIGRAINE [None]
  - MUSCLE SPASMS [None]
  - NEPHROLITHIASIS [None]
  - OROPHARYNGEAL CANDIDIASIS [None]
  - OSTEITIS [None]
  - OSTEOMYELITIS [None]
  - OSTEONECROSIS OF JAW [None]
  - PAIN IN JAW [None]
  - PELVIC FRACTURE [None]
  - PLEOCYTOSIS [None]
  - RESPIRATORY DISTRESS [None]
  - SEPSIS [None]
  - TEMPOROMANDIBULAR JOINT SYNDROME [None]
  - TOOTH ABSCESS [None]
  - TOOTH DISORDER [None]
  - TOOTH INFECTION [None]
  - TOOTHACHE [None]
  - VOMITING [None]
